FAERS Safety Report 7138423-2 (Version None)
Quarter: 2010Q4

REPORT INFORMATION
  Report Type: 
  Country: None (occurrence: None)
  Receive Date: 20101110
  Receipt Date: 20101026
  Transmission Date: 20110411
  Serious: Yes (Death)
  Sender: FDA-Public Use
  Company Number: 2010PROUSA00061

PATIENT
  Age: 68 Year
  Sex: Male

DRUGS (5)
  1. PROVENGE [Suspect]
     Indication: PROSTATE CANCER METASTATIC
     Dosage: 250 ML, SINGLE, INTRAVENOUS
     Route: 042
     Dates: start: 20100816, end: 20100816
  2. LUPRON DEPOT [Concomitant]
  3. PREDNISONE TAB [Concomitant]
  4. ARIXTRA [Concomitant]
  5. CALCITROL /00508501/ (CALCIUM CARBONATE, ERGOCALCIFEROL, RETINOL) CAPS [Concomitant]

REACTIONS (8)
  - EOSINOPHIL COUNT INCREASED [None]
  - HAEMATOCRIT DECREASED [None]
  - HAEMATURIA [None]
  - HAEMOGLOBIN DECREASED [None]
  - LYMPHOCYTE COUNT DECREASED [None]
  - NEUTROPHIL COUNT INCREASED [None]
  - PROSTATIC SPECIFIC ANTIGEN INCREASED [None]
  - WHITE BLOOD CELL COUNT INCREASED [None]
